FAERS Safety Report 9798021 (Version 1)
Quarter: 2014Q1

REPORT INFORMATION
  Report Type: Report from Study
  Country: DE (occurrence: DE)
  Receive Date: 20140106
  Receipt Date: 20140106
  Transmission Date: 20141002
  Serious: Yes (Other)
  Sender: FDA-Public Use
  Company Number: DE-B.I. PHARMACEUTICALS,INC./RIDGEFIELD-2014-BI-00117DE

PATIENT
  Sex: 0

DRUGS (4)
  1. BEROTEC [Suspect]
     Route: 055
     Dates: start: 20131230
  2. ATROVENT [Suspect]
     Route: 055
     Dates: start: 20131230
  3. DOMINAL 80 [Suspect]
     Dosage: 7 DOMINAL 80 TABLETS OVER 12 HOURS
     Route: 048
     Dates: start: 20131230
  4. NOVALGIN 500 [Suspect]
     Dosage: 1 ANZ
     Route: 048
     Dates: start: 20131230

REACTIONS (2)
  - Systolic hypertension [Unknown]
  - Tachycardia [Unknown]
